FAERS Safety Report 5286879-2 (Version None)
Quarter: 2007Q1

REPORT INFORMATION
  Report Type: 
  Country: None (occurrence: None)
  Receive Date: 20070329
  Receipt Date: 20070322
  Transmission Date: 20070707
  Serious: Yes (Life-Threatening)
  Sender: FDA-Public Use
  Company Number: 238758

PATIENT
  Sex: Female

DRUGS (1)
  1. XOLAIR [Suspect]
     Indication: ASTHMA
     Dosage: 300 MG, Q2W, UNK
     Dates: start: 20040409

REACTIONS (5)
  - COUGH [None]
  - DYSPNOEA [None]
  - RASH [None]
  - URTICARIA [None]
  - WHEEZING [None]
